FAERS Safety Report 4427819-5 (Version None)
Quarter: 2004Q3

REPORT INFORMATION
  Report Type: 
  Country: None (occurrence: None)
  Receive Date: 20040817
  Receipt Date: 20040813
  Transmission Date: 20050211
  Serious: Yes (Other)
  Sender: FDA-Public Use
  Company Number: PHNU2004DE02866

PATIENT
  Sex: Male

DRUGS (1)
  1. TEGRETOL [Suspect]
     Dosage: ^MODERATE^ DOSIS
     Route: 065
     Dates: start: 19890101, end: 19920101

REACTIONS (2)
  - VISUAL DISTURBANCE [None]
  - VITREOUS OPACITIES [None]
